APPROVED DRUG PRODUCT: MITOXANTRONE HYDROCHLORIDE
Active Ingredient: MITOXANTRONE HYDROCHLORIDE
Strength: EQ 30MG BASE/15ML (EQ 2MG BASE/ML)
Dosage Form/Route: INJECTABLE;INJECTION
Application: A078980 | Product #002
Applicant: RISING PHARMA HOLDINGS INC
Approved: Apr 13, 2009 | RLD: No | RS: No | Type: DISCN